FAERS Safety Report 16131557 (Version 5)
Quarter: 2021Q2

REPORT INFORMATION
  Report Type: Other
  Country: DE (occurrence: DE)
  Receive Date: 20190328
  Receipt Date: 20210429
  Transmission Date: 20210716
  Serious: Yes (Life-Threatening, Hospitalization, Other)
  Sender: FDA-Public Use
  Company Number: DE-CELLTRION INC.-2019DE019582

PATIENT

DRUGS (17)
  1. TRASTUZUMAB (UNKNOWN) [Suspect]
     Active Substance: TRASTUZUMAB
     Indication: HER2 POSITIVE BREAST CANCER
     Dosage: 745 MG, EVERY MONTH (MOST RECENT DOSE PRIOR TO SECOND EPISODE OF WHITE BLOOD CELL DECREASED: 26/JUL/
     Route: 042
     Dates: start: 20170131
  2. PERTUZUMAB. [Suspect]
     Active Substance: PERTUZUMAB
     Dosage: UNK
     Route: 065
  3. PERTUZUMAB. [Suspect]
     Active Substance: PERTUZUMAB
     Dosage: 840 MG, EVERY 21 DAYS (MOST RECENT DOSE PRIOR TO SECOND EPISODE OF WHITE BLOOD CELL DECREASED: 26/JU
     Route: 042
     Dates: start: 20170731
  4. PERJETA [Suspect]
     Active Substance: PERTUZUMAB
     Indication: HER2 POSITIVE BREAST CANCER
     Dosage: 840 MG EVERY 21 DAYS (MOST RECENT DOSE PRIOR TO SECOND EPISODE OF WHITE BLOOD CELL DECREASED: 26/JUL
     Route: 042
     Dates: start: 20170131
  5. HERCEPTIN [Suspect]
     Active Substance: TRASTUZUMAB
     Indication: HER2 POSITIVE BREAST CANCER
     Dosage: 520 MG EVERY 21 DAYS (MOST RECENT DOSE PRIOR TO SECOND EPISODE OF WHITE BLOOD CELL DECREASED: 26/JUL
     Route: 042
     Dates: start: 20170131
  6. DOCETAXEL. [Suspect]
     Active Substance: DOCETAXEL
     Indication: HER2 POSITIVE BREAST CANCER
     Dosage: 150 MG, EVERY 21 DAYS
     Route: 042
     Dates: start: 20170131
  7. TRASTUZUMAB (UNKNOWN) [Suspect]
     Active Substance: TRASTUZUMAB
     Dosage: 480 MG, EVERY 21 DAYS (MOST RECENT DOSE PRIOR TO SECOND EPISODE OF WHITE BLOOD CELL DECREASED: 26/JU
     Route: 042
     Dates: start: 20170131
  8. TRASTUZUMAB (UNKNOWN) [Suspect]
     Active Substance: TRASTUZUMAB
     Dosage: 520 MILLIGRAM EVERY 3 WEEKS (MOST RECENT DOSE PRIOR TO SECOND EPISODE OF WHITE BLOOD CELL DECREASED:
     Route: 042
     Dates: start: 20170131
  9. TRASTUZUMAB (UNKNOWN) [Suspect]
     Active Substance: TRASTUZUMAB
     Dosage: 525 MG, EVERY 3 WEEKS (MOST RECENT DOSE PRIOR TO SAE: 08/JAN/2019)
     Route: 042
     Dates: start: 20170131
  10. TRASTUZUMAB (UNKNOWN) [Suspect]
     Active Substance: TRASTUZUMAB
     Dosage: 520 MG EVERY 21 DAYS (MOST RECENT DOSE PRIOR TO SECOND EPISODE OF WHITE BLOOD CELL DECREASED: 26/JUL
     Route: 042
     Dates: start: 20170131
  11. TAXOTERE [Suspect]
     Active Substance: DOCETAXEL
     Indication: HER2 POSITIVE BREAST CANCER
     Dosage: 150 MG, EVERY 21 DAYS (MOST RECENT DOSE PRIOR TO SECOND EPISODE OF WHITE BLOOD CELL DECREASED: 26/JU
     Route: 042
     Dates: start: 20170131
  12. TRASTUZUMAB (UNKNOWN) [Suspect]
     Active Substance: TRASTUZUMAB
     Dosage: 560 MG, EVERY 21 DAYS (MOST RECENT DOSE PRIOR TO SECOND EPISODE OF WHITE BLOOD CELL DECREASED: 26/JU
     Route: 042
     Dates: start: 20170131
  13. PERTUZUMAB. [Suspect]
     Active Substance: PERTUZUMAB
     Indication: HER2 POSITIVE BREAST CANCER
     Dosage: 420 MG, EVERY 3 WEEKS  (MOST RECENT DOSE PRIOR TO SAE: 08/JAN/2019)
     Route: 042
     Dates: start: 20170131
  14. PERTUZUMAB. [Suspect]
     Active Substance: PERTUZUMAB
     Dosage: 520 MG, EVERY 3 WEEKS (MOST RECENT DOSE PRIOR TO SECOND EPISODE OF WHITE BLOOD CELL DECREASED: 26/JU
     Route: 042
     Dates: start: 20170131
  15. DEXAMETHASON [Concomitant]
     Active Substance: DEXAMETHASONE
     Indication: PROPHYLAXIS
     Dosage: 12 MG, EVERY 21 DAYS
     Route: 042
     Dates: start: 20170131
  16. RANITIDIN [Concomitant]
     Active Substance: RANITIDINE HYDROCHLORIDE
     Indication: PROPHYLAXIS
     Dosage: 1 DF, EVERY 21 DAYS
     Route: 042
  17. TAVEGIL [Concomitant]
     Active Substance: CLEMASTINE FUMARATE
     Indication: PROPHYLAXIS
     Dosage: 1 DF, EVERY 21 DAYS
     Route: 042
     Dates: start: 20170131

REACTIONS (16)
  - Overdose [Unknown]
  - Product use issue [Unknown]
  - Anaemia [Not Recovered/Not Resolved]
  - Pain in extremity [Not Recovered/Not Resolved]
  - White blood cell count decreased [Recovered/Resolved]
  - Fatigue [Not Recovered/Not Resolved]
  - Underdose [Unknown]
  - Peripheral sensory neuropathy [Not Recovered/Not Resolved]
  - Paraesthesia [Not Recovered/Not Resolved]
  - Chills [Recovered/Resolved]
  - Pruritus [Not Recovered/Not Resolved]
  - Alopecia [Not Recovered/Not Resolved]
  - Pruritus [Not Recovered/Not Resolved]
  - Gastrointestinal pain [Recovered/Resolved]
  - Restless legs syndrome [Not Recovered/Not Resolved]
  - Diarrhoea [Recovered/Resolved]

NARRATIVE: CASE EVENT DATE: 20170131
